FAERS Safety Report 7183587-8 (Version None)
Quarter: 2010Q4

REPORT INFORMATION
  Report Type: 
  Country: None (occurrence: None)
  Receive Date: 20101222
  Receipt Date: 20101215
  Transmission Date: 20110411
  Serious: Yes (Other)
  Sender: FDA-Public Use
  Company Number: US-PFIZER INC-2010171243

PATIENT
  Sex: Male

DRUGS (4)
  1. VIAGRA [Suspect]
     Dosage: 100 MG, UNK
     Dates: start: 19990101
  2. HYZAAR [Concomitant]
     Dosage: UNK
  3. METFORMIN [Concomitant]
     Dosage: UNK
  4. GLEEVEC [Concomitant]
     Dosage: UNK

REACTIONS (2)
  - CHRONIC MYELOID LEUKAEMIA [None]
  - DRUG EFFECT DECREASED [None]
